FAERS Safety Report 22647872 (Version 1)
Quarter: 2023Q2

REPORT INFORMATION
  Report Type: Report from Study
  Country: US (occurrence: US)
  Receive Date: 20230628
  Receipt Date: 20230628
  Transmission Date: 20230721
  Serious: Yes (Other)
  Sender: FDA-Public Use
  Company Number: US-Merck Healthcare KGaA-2023457200

PATIENT
  Sex: Female
  Weight: 43 kg

DRUGS (1)
  1. REBIF [Suspect]
     Active Substance: INTERFERON BETA-1A
     Indication: Multiple sclerosis
     Route: 058
     Dates: start: 20130323

REACTIONS (5)
  - Oophorectomy [Unknown]
  - Muscle spasticity [Unknown]
  - Nervous system disorder [Unknown]
  - Vulvovaginal pain [Unknown]
  - Movement disorder [Unknown]
